FAERS Safety Report 17169477 (Version 5)
Quarter: 2020Q2

REPORT INFORMATION
  Report Type: Spontaneous
  Country: US (occurrence: US)
  Receive Date: 20191218
  Receipt Date: 20200511
  Transmission Date: 20200713
  Serious: Yes (Other)
  Sender: FDA-Public Use
  Company Number: US-ACTELION-A-NJ2019-199128

PATIENT
  Age: 80 Year
  Sex: Female

DRUGS (7)
  1. OPSUMIT [Suspect]
     Active Substance: MACITENTAN
     Indication: PULMONARY ARTERIAL HYPERTENSION
     Dosage: 10 MG, QD
     Route: 048
     Dates: start: 20191108
  2. LASIX [Concomitant]
     Active Substance: FUROSEMIDE
  3. ADEMPAS [Suspect]
     Active Substance: RIOCIGUAT
     Indication: PRODUCT USED FOR UNKNOWN INDICATION
     Dosage: 1 MG, TID
     Route: 065
  4. ADEMPAS [Suspect]
     Active Substance: RIOCIGUAT
     Dosage: 1 MG, BID
     Route: 065
  5. TADALAFIL. [Concomitant]
     Active Substance: TADALAFIL
     Dosage: 20 MG, BID
  6. ADEMPAS [Suspect]
     Active Substance: RIOCIGUAT
     Dosage: 200 UNK, QD
     Route: 065
  7. ADEMPAS [Suspect]
     Active Substance: RIOCIGUAT
     Dosage: 1400 UNK, BID
     Route: 065

REACTIONS (21)
  - Condition aggravated [Recovered/Resolved]
  - Nasal congestion [Unknown]
  - Dyspepsia [Recovering/Resolving]
  - Cardiac failure [Recovered/Resolved]
  - Limb discomfort [Recovered/Resolved]
  - Fatigue [Unknown]
  - Abdominal discomfort [Unknown]
  - Hypotension [Recovering/Resolving]
  - Oedema peripheral [Recovered/Resolved]
  - Rhinorrhoea [Unknown]
  - Diarrhoea [Unknown]
  - Exercise tolerance decreased [Recovered/Resolved]
  - Headache [Unknown]
  - Visual impairment [Unknown]
  - Mydriasis [Unknown]
  - Nausea [Recovering/Resolving]
  - Brain natriuretic peptide increased [Recovered/Resolved]
  - Insomnia [Not Recovered/Not Resolved]
  - Dyspnoea [Unknown]
  - Dizziness [Recovering/Resolving]
  - Photosensitivity reaction [Unknown]

NARRATIVE: CASE EVENT DATE: 201911
